FAERS Safety Report 5908787-3 (Version None)
Quarter: 2008Q4

REPORT INFORMATION
  Report Type: 
  Country: None (occurrence: None)
  Receive Date: 20081006
  Receipt Date: 20080926
  Transmission Date: 20090506
  Serious: Yes (Other)
  Sender: FDA-Public Use
  Company Number: PHHY2008NL20949

PATIENT
  Sex: Female

DRUGS (8)
  1. EXELON [Suspect]
     Indication: PARKINSON'S DISEASE
     Dosage: 4.6 MG
     Route: 062
     Dates: start: 20080717
  2. EXELON [Suspect]
     Dosage: 9.5 MG
     Route: 062
     Dates: start: 20080807
  3. EXELON [Suspect]
     Dosage: 4.6 MG
     Route: 062
     Dates: start: 20080810, end: 20080812
  4. PARLODEL [Concomitant]
     Dosage: TWICE 2.5
  5. MADOPAR [Concomitant]
     Dosage: THREE TIMES 250MG
  6. SEROQUEL [Concomitant]
     Dosage: 1DD,25
  7. MOVICOLON [Concomitant]
     Dosage: 1DD
  8. NOROXIN [Concomitant]
     Dosage: 1DD

REACTIONS (4)
  - ABASIA [None]
  - CONFUSIONAL STATE [None]
  - DEPRESSED LEVEL OF CONSCIOUSNESS [None]
  - SOMNOLENCE [None]
